FAERS Safety Report 5928315-6 (Version None)
Quarter: 2008Q4

REPORT INFORMATION
  Report Type: 
  Country: None (occurrence: None)
  Receive Date: 20081022
  Receipt Date: 20081022
  Transmission Date: 20090506
  Serious: Yes (Other)
  Sender: FDA-Public Use
  Company Number: None

PATIENT
  Age: 66 Year
  Sex: Female
  Weight: 77.1115 kg

DRUGS (2)
  1. TRIAMCINOLONE [Suspect]
     Indication: FUNGAL INFECTION
     Dosage: LT APPLICATION TO IRRITATED AR 2 DAY TOP
     Route: 061
     Dates: start: 20081001, end: 20081014
  2. NYSTATIN [Suspect]

REACTIONS (4)
  - ASTHENIA [None]
  - CONFUSIONAL STATE [None]
  - MENTAL IMPAIRMENT [None]
  - THINKING ABNORMAL [None]
